FAERS Safety Report 4377205-1 (Version None)
Quarter: 2004Q2

REPORT INFORMATION
  Report Type: 
  Country: None (occurrence: None)
  Receive Date: 20040609
  Receipt Date: 20040304
  Transmission Date: 20050107
  Serious: No
  Sender: FDA-Public Use
  Company Number: 2003157908US

PATIENT
  Age: 53 Year
  Sex: Female

DRUGS (4)
  1. BEXTRA [Suspect]
     Indication: ARTHRALGIA
     Dosage: 20 MG,QD, ORAL
     Route: 048
     Dates: start: 20030421, end: 20040302
  2. FOSAMAX [Concomitant]
  3. DIOVAN [Concomitant]
  4. SYNTHROID [Concomitant]

REACTIONS (3)
  - MUSCLE SPASMS [None]
  - PRURITUS [None]
  - RASH [None]
